FAERS Safety Report 8011517-5 (Version None)
Quarter: 2011Q4

REPORT INFORMATION
  Report Type: 
  Country: None (occurrence: None)
  Receive Date: 20111228
  Receipt Date: 20111222
  Transmission Date: 20120403
  Serious: No
  Sender: FDA-Public Use
  Company Number: US-PFIZER INC-2011173081

PATIENT
  Sex: Male

DRUGS (3)
  1. PRISTIQ [Suspect]
     Dosage: UNK
     Route: 048
  2. PROZAC [Suspect]
     Dosage: UNK
  3. PRISTIQ [Suspect]
     Dosage: 50 MG
     Route: 048

REACTIONS (4)
  - URINE FLOW DECREASED [None]
  - DYSURIA [None]
  - DRY MOUTH [None]
  - ABNORMAL DREAMS [None]
